FAERS Safety Report 7084015-3 (Version None)
Quarter: 2010Q4

REPORT INFORMATION
  Report Type: 
  Country: None (occurrence: None)
  Receive Date: 20101104
  Receipt Date: 20101025
  Transmission Date: 20110411
  Serious: Yes (Hospitalization, Other)
  Sender: FDA-Public Use
  Company Number: FR-EISAI INC.-E3810-04195-SPO-FR

PATIENT
  Sex: Female

DRUGS (8)
  1. PARIET (RABEPRAZOLE) [Suspect]
     Route: 048
     Dates: end: 20100812
  2. CORDARONE [Suspect]
     Route: 048
     Dates: start: 20050101, end: 20100811
  3. TRINIPATCH [Suspect]
     Dosage: UNKNOWN
     Route: 062
  4. PREVISCAN [Suspect]
     Dosage: UNKNOWN
     Route: 048
     Dates: end: 20100817
  5. ALDALIX [Suspect]
     Dosage: UNKNOWN
     Route: 048
     Dates: end: 20100811
  6. LEVOTHYROXINE SODIUM [Suspect]
     Indication: HYPOTHYROIDISM
     Dosage: UNKNOWN
     Route: 048
  7. CALCIDOSE VITAMINE D [Suspect]
     Dosage: UNKNOWN
     Route: 048
     Dates: end: 20100801
  8. FOSAMAX [Suspect]
     Dosage: UNKNOWN
     Route: 048
     Dates: end: 20100801

REACTIONS (8)
  - DYSPNOEA AT REST [None]
  - FALL [None]
  - INTERSTITIAL LUNG DISEASE [None]
  - OEDEMA PERIPHERAL [None]
  - PLEURAL EFFUSION [None]
  - PULMONARY FIBROSIS [None]
  - RIB FRACTURE [None]
  - SPINAL FRACTURE [None]
